FAERS Safety Report 6223466-3 (Version None)
Quarter: 2009Q2

REPORT INFORMATION
  Report Type: 
  Country: None (occurrence: None)
  Receive Date: 20090611
  Receipt Date: 20090601
  Transmission Date: 20091009
  Serious: Yes (Other)
  Sender: FDA-Public Use
  Company Number: ZA-ABBOTT-09P-143-0574918-00

PATIENT
  Sex: Female

DRUGS (1)
  1. SYNAGIS [Suspect]
     Indication: ANTIVIRAL PROPHYLAXIS
     Route: 030
     Dates: start: 20090429, end: 20090429

REACTIONS (4)
  - BRONCHIOLITIS [None]
  - COUGH [None]
  - INCREASED UPPER AIRWAY SECRETION [None]
  - VOMITING [None]
